FAERS Safety Report 8614391 (Version 4)
Quarter: 2014Q2

REPORT INFORMATION
  Report Type: Spontaneous
  Country: US (occurrence: US)
  Receive Date: 20120614
  Receipt Date: 20140523
  Transmission Date: 20141212
  Serious: Yes (Hospitalization, Disabling)
  Sender: FDA-Public Use
  Company Number: US-ASTRAZENECA-2012SE35449

PATIENT
  Age: 764 Month
  Sex: Female

DRUGS (35)
  1. NEXIUM [Suspect]
     Indication: GASTROOESOPHAGEAL REFLUX DISEASE
     Route: 048
     Dates: start: 20021214
  2. NEXIUM [Suspect]
     Indication: ABDOMINAL DISCOMFORT
     Route: 048
     Dates: start: 20021214
  3. NEXIUM [Suspect]
     Indication: GASTROOESOPHAGEAL REFLUX DISEASE
     Route: 048
     Dates: start: 200311, end: 201112
  4. NEXIUM [Suspect]
     Indication: ABDOMINAL DISCOMFORT
     Route: 048
     Dates: start: 200311, end: 201112
  5. NEXIUM [Suspect]
     Indication: GASTROOESOPHAGEAL REFLUX DISEASE
     Route: 048
     Dates: start: 20090910
  6. NEXIUM [Suspect]
     Indication: ABDOMINAL DISCOMFORT
     Route: 048
     Dates: start: 20090910
  7. OMEPRAZOLE MAGNESIUM OTC [Suspect]
     Indication: GASTROOESOPHAGEAL REFLUX DISEASE
     Route: 048
  8. OMEPRAZOLE MAGNESIUM OTC [Suspect]
     Indication: GASTROOESOPHAGEAL REFLUX DISEASE
     Route: 048
     Dates: start: 20021026
  9. ZANTAC [Concomitant]
  10. PEPCID [Concomitant]
  11. TAGAMET [Concomitant]
  12. ESTROGEN [Concomitant]
     Dosage: 1 DAILY
  13. PRILOSEC [Concomitant]
     Dates: start: 20021026
  14. EVISTA [Concomitant]
     Dates: start: 20021031
  15. LISINOPRIL [Concomitant]
     Indication: BLOOD PRESSURE ABNORMAL
     Dates: start: 20021111
  16. LISINOPRIL [Concomitant]
     Indication: BLOOD PRESSURE ABNORMAL
     Dates: start: 20021111
  17. ZYRTEC [Concomitant]
     Dates: start: 20021111
  18. LORAZEPAM [Concomitant]
     Dates: start: 20021210
  19. METHYLPRED [Concomitant]
     Dosage: 4 MG PACK
     Dates: start: 20030109
  20. DIPHENHYDRAMINE [Concomitant]
     Dates: start: 20030110
  21. ALLEGRA [Concomitant]
     Dates: start: 20030312
  22. RHINOCORT AQUA [Concomitant]
     Dosage: 32 MCG
     Dates: start: 20030330
  23. SINGULAIR [Concomitant]
     Dates: start: 20030407
  24. SINGULAIR [Concomitant]
     Dates: start: 20090910
  25. ALBUTEROL [Concomitant]
     Dosage: 90 MCG TWO PUFFS TWICE DAILY
     Dates: start: 20030422
  26. FLONASE/ADVIAR [Concomitant]
     Indication: CHRONIC OBSTRUCTIVE PULMONARY DISEASE
     Dates: start: 20050809
  27. FLONASE/ADVIAR [Concomitant]
     Indication: CHRONIC OBSTRUCTIVE PULMONARY DISEASE
     Dosage: 500/50 DISKUS ONE PUFF TWICE DAILY
     Dates: start: 20061014
  28. LOVASTATIN [Concomitant]
     Dates: start: 20051115
  29. AMITRIPTYLIN [Concomitant]
     Dates: start: 20060818
  30. REQUIP [Concomitant]
     Indication: RESTLESS LEGS SYNDROME
     Dates: start: 20060614
  31. NYSTATIN [Concomitant]
     Dates: start: 20060418
  32. NAPROXEN [Concomitant]
  33. AMBIEN [Concomitant]
     Dates: start: 20040517
  34. CITALOPRAM [Concomitant]
     Dates: start: 20021227
  35. ROPINIROLE [Concomitant]
     Dates: start: 20080520

REACTIONS (11)
  - Ligament sprain [Unknown]
  - Rotator cuff syndrome [Unknown]
  - Upper respiratory tract infection [Unknown]
  - Osteoporosis [Unknown]
  - Bone disorder [Unknown]
  - Multiple fractures [Unknown]
  - Osteopenia [Unknown]
  - Peripheral vascular disorder [Unknown]
  - Chronic obstructive pulmonary disease [Unknown]
  - Gait disturbance [Unknown]
  - Arthralgia [Unknown]
